FAERS Safety Report 23644386 (Version 3)
Quarter: 2024Q2

REPORT INFORMATION
  Report Type: Spontaneous
  Country: US (occurrence: US)
  Receive Date: 20240318
  Receipt Date: 20240506
  Transmission Date: 20240715
  Serious: No
  Sender: FDA-Public Use
  Company Number: US-SA-SAC20240314000216

PATIENT
  Sex: Female

DRUGS (31)
  1. DUPIXENT [Suspect]
     Active Substance: DUPILUMAB
     Indication: Dermatitis atopic
     Dosage: 300 MG, QOW
     Route: 058
  2. ADDERALL [Concomitant]
     Active Substance: AMPHETAMINE ASPARTATE\AMPHETAMINE SULFATE\DEXTROAMPHETAMINE SACCHARATE\DEXTROAMPHETAMINE SULFATE
  3. ASPIRIN [Concomitant]
     Active Substance: ASPIRIN
  4. DORZOLAMIDE [Concomitant]
     Active Substance: DORZOLAMIDE
  5. DORZOLAMIDE [Concomitant]
     Active Substance: DORZOLAMIDE
  6. FLUTICASONE [Concomitant]
     Active Substance: FLUTICASONE
  7. FLUTICASONE [Concomitant]
     Active Substance: FLUTICASONE
  8. FUROSEMIDE [Concomitant]
     Active Substance: FUROSEMIDE
  9. FUROSEMIDE [Concomitant]
     Active Substance: FUROSEMIDE
  10. IPRATROPIUM [Concomitant]
     Active Substance: IPRATROPIUM
  11. IPRATROPIUM [Concomitant]
     Active Substance: IPRATROPIUM
  12. LUMIGAN [Concomitant]
     Active Substance: BIMATOPROST
  13. OLANZAPINE [Concomitant]
     Active Substance: OLANZAPINE
  14. OLOPATADINE [Concomitant]
     Active Substance: OLOPATADINE
  15. PREDNISONE [Concomitant]
     Active Substance: PREDNISONE
  16. RESTASIS [Concomitant]
     Active Substance: CYCLOSPORINE
  17. TYLENOL [Concomitant]
     Active Substance: ACETAMINOPHEN
  18. CEPHALEXIN [Concomitant]
     Active Substance: CEPHALEXIN
     Dosage: 250 MG
  19. ADVAIR HFA [Concomitant]
     Active Substance: FLUTICASONE PROPIONATE\SALMETEROL XINAFOATE
  20. ESTRACE [Concomitant]
     Active Substance: ESTRADIOL
  21. PATADAY [Concomitant]
     Active Substance: OLOPATADINE HYDROCHLORIDE
  22. RANITIDINE HYDROCHLORIDE [Concomitant]
     Active Substance: RANITIDINE HYDROCHLORIDE
  23. VENTOLIN HFA [Concomitant]
     Active Substance: ALBUTEROL SULFATE
  24. ZOLPIDEM [Concomitant]
     Active Substance: ZOLPIDEM TARTRATE
  25. ZYVOX [Concomitant]
     Active Substance: LINEZOLID
  26. ACETAMINOPHEN\OXYCODONE HYDROCHLORIDE [Concomitant]
     Active Substance: ACETAMINOPHEN\OXYCODONE HYDROCHLORIDE
  27. CIPROFLOXACIN HYDROCHLORIDE [Concomitant]
     Active Substance: CIPROFLOXACIN HYDROCHLORIDE
  28. CLINDAMYCIN [Concomitant]
     Active Substance: CLINDAMYCIN
  29. ALENDRONATE [Concomitant]
     Active Substance: ALENDRONATE SODIUM
  30. SIMBRINZA [Concomitant]
     Active Substance: BRIMONIDINE TARTRATE\BRINZOLAMIDE
  31. PHENYTOIN [Concomitant]
     Active Substance: PHENYTOIN

REACTIONS (13)
  - Diarrhoea [Unknown]
  - Vomiting [Unknown]
  - Visual impairment [Unknown]
  - Abdominal discomfort [Unknown]
  - Swelling of eyelid [Unknown]
  - Oropharyngeal pain [Unknown]
  - Vision blurred [Recovering/Resolving]
  - Condition aggravated [Recovering/Resolving]
  - Insomnia [Not Recovered/Not Resolved]
  - Condition aggravated [Not Recovered/Not Resolved]
  - Injection site pain [Unknown]
  - Eye inflammation [Unknown]
  - Drug ineffective [Unknown]
